FAERS Safety Report 4294700-4 (Version None)
Quarter: 2004Q1

REPORT INFORMATION
  Report Type: 
  Country: None (occurrence: None)
  Receive Date: 20040213
  Receipt Date: 20031013
  Transmission Date: 20041129
  Serious: Yes (Death, Hospitalization)
  Sender: FDA-Public Use
  Company Number: US-ROCHE-349203

PATIENT
  Age: 32 Year
  Sex: Male
  Weight: 81.6 kg

DRUGS (10)
  1. PEGASYS [Suspect]
     Indication: HEPATITIS C
     Route: 058
     Dates: start: 20030826, end: 20030916
  2. COPEGUS [Suspect]
     Indication: HEPATITIS C
     Route: 048
     Dates: start: 20030826, end: 20030916
  3. PAXIL [Concomitant]
     Indication: DEPRESSION
     Dosage: DOSAGE INCREASED FROM 20 MG TO 40 MG ON 26 AUG 2003.
     Route: 048
     Dates: start: 20020615
  4. THYROID MEDICATION [Concomitant]
     Indication: HYPERTHYROIDISM
     Route: 048
  5. MILK THISTLE [Concomitant]
     Indication: HEPATITIS C
     Route: 048
  6. MULTI-VITAMIN [Concomitant]
     Route: 048
  7. ATENOLOL [Concomitant]
     Dates: start: 20030815
  8. METHIMAZOLE [Concomitant]
     Dates: start: 20030815
  9. PAMINE [Concomitant]
     Dates: start: 20030815
  10. DARVOCET [Concomitant]
     Dates: start: 20030815

REACTIONS (12)
  - ANAEMIA [None]
  - ARTHRALGIA [None]
  - ARTHROPOD BITE [None]
  - DISSEMINATED INTRAVASCULAR COAGULATION [None]
  - HEPATIC CIRRHOSIS [None]
  - HEPATIC FAILURE [None]
  - INSOMNIA [None]
  - MULTI-ORGAN FAILURE [None]
  - PYREXIA [None]
  - SEPSIS [None]
  - THROMBOCYTOPENIA [None]
  - WHITE BLOOD CELL COUNT DECREASED [None]
